FAERS Safety Report 7422921-8 (Version None)
Quarter: 2011Q2

REPORT INFORMATION
  Report Type: 
  Country: None (occurrence: None)
  Receive Date: 20110405
  Receipt Date: 20110316
  Transmission Date: 20111010
  Serious: Yes (Death)
  Sender: FDA-Public Use
  Company Number: OMX-2011-00015

PATIENT
  Sex: Female

DRUGS (2)
  1. QUIXIL [Suspect]
     Indication: KNEE ARTHROPLASTY
     Dates: start: 20110301, end: 20110301
  2. APPLICATOR [Concomitant]

REACTIONS (1)
  - PULMONARY EMBOLISM [None]
